FAERS Safety Report 7166536-8 (Version None)
Quarter: 2010Q4

REPORT INFORMATION
  Report Type: 
  Country: None (occurrence: None)
  Receive Date: 20101216
  Receipt Date: 20101213
  Transmission Date: 20110411
  Serious: Yes (Death)
  Sender: FDA-Public Use
  Company Number: DE-BRISTOL-MYERS SQUIBB COMPANY-15219827

PATIENT
  Age: 69 Year
  Sex: Female
  Weight: 80 kg

DRUGS (8)
  1. ONGLYZA [Suspect]
     Indication: TYPE 2 DIABETES MELLITUS
     Route: 048
     Dates: start: 20100621
  2. BISOPROLOL FUMARATE [Concomitant]
     Dosage: BISOPROLOL HEMIFUMARATE+HCTZ 10/25 MG/D REGIMEN 1-0-1
  3. CARBAMAZEPINE [Concomitant]
     Dosage: REGIMEN 1-1-1
  4. ASPIRIN [Concomitant]
     Dosage: REGIMEN 0-1-0
  5. LISINOPRIL [Concomitant]
     Dosage: REGIMEN 1-0-0
  6. NITRENDIPINE [Concomitant]
     Dosage: REGIMEN 1-0-1
  7. SIMVASTATIN [Concomitant]
     Dosage: REGIMEN 0-0-1
  8. HYDROCHLOROTHIAZIDE [Concomitant]
     Dosage: 1DF=10/25 MG/D REGIMEN 1-0-1 WITH BISOPROLOL HEMIFUMARATE

REACTIONS (2)
  - PULMONARY EMBOLISM [None]
  - SUDDEN DEATH [None]
